FAERS Safety Report 11444623 (Version 1)
Quarter: 2015Q3

REPORT INFORMATION
  Report Type: Spontaneous
  Country: US (occurrence: None)
  Receive Date: 20150831
  Receipt Date: 20150831
  Transmission Date: 20151125
  Serious: Yes (Disabling)
  Sender: FDA-Public Use
  Company Number: None

PATIENT
  Age: 50 Year
  Sex: Female
  Weight: 55.79 kg

DRUGS (7)
  1. AVELOX [Suspect]
     Active Substance: MOXIFLOXACIN HYDROCHLORIDE
     Indication: LUNG INFECTION
     Dosage: 10 PILLS
     Route: 048
     Dates: start: 20011120, end: 20011205
  2. GABAPENTON [Concomitant]
  3. MULTIVITAMIN [Concomitant]
     Active Substance: VITAMINS
  4. DIGESTIVE ENZYMNES [Concomitant]
  5. TRAMADOL. [Concomitant]
     Active Substance: TRAMADOL
  6. CHLORAZAPATE [Concomitant]
  7. PRBIOTICS [Concomitant]

REACTIONS (6)
  - Anxiety [None]
  - Muscle atrophy [None]
  - Food aversion [None]
  - Insomnia [None]
  - Unevaluable event [None]
  - Neuropathy peripheral [None]

NARRATIVE: CASE EVENT DATE: 20011115
